FAERS Safety Report 7150510-1 (Version None)
Quarter: 2010Q4

REPORT INFORMATION
  Report Type: 
  Country: None (occurrence: None)
  Receive Date: 20101210
  Receipt Date: 20101208
  Transmission Date: 20110411
  Serious: Yes (Death, Hospitalization)
  Sender: FDA-Public Use
  Company Number: US-SANOFI-AVENTIS-2010SA074333

PATIENT
  Sex: Male

DRUGS (1)
  1. AMARYL [Suspect]
     Route: 065

REACTIONS (2)
  - BRAIN DEATH [None]
  - HYPOGLYCAEMIC COMA [None]
